FAERS Safety Report 10266849 (Version 1)
Quarter: 2014Q2

REPORT INFORMATION
  Report Type: Spontaneous
  Country: US (occurrence: None)
  Receive Date: 20140626
  Receipt Date: 20140626
  Transmission Date: 20141212
  Serious: No
  Sender: FDA-Public Use
  Company Number: None

PATIENT
  Age: 77 Year
  Sex: Female
  Weight: 63.5 kg

DRUGS (3)
  1. COUMADIN [Suspect]
     Indication: HIP ARTHROPLASTY
     Dosage: .5 AMOUNT VARIED 1 PER DAY, ONCE, MOUTH
     Route: 048
     Dates: start: 20140515, end: 20140608
  2. VITAMIN D [Concomitant]
  3. EVISTA [Concomitant]

REACTIONS (5)
  - Miliaria [None]
  - Rib fracture [None]
  - Clavicle fracture [None]
  - Drug hypersensitivity [None]
  - Pruritus [None]
